FAERS Safety Report 8349621-4 (Version None)
Quarter: 2012Q2

REPORT INFORMATION
  Report Type: 
  Country: None (occurrence: None)
  Receive Date: 20120510
  Receipt Date: 20120503
  Transmission Date: 20120825
  Serious: Yes (Hospitalization)
  Sender: FDA-Public Use
  Company Number: US-BAYER-2011-109992

PATIENT
  Age: 28 Year
  Sex: Female
  Weight: 54.422 kg

DRUGS (2)
  1. DROSPIRENONE AND ETHINYL ESTRADIOL [Suspect]
     Dosage: UNK
     Dates: start: 20080301, end: 20100201
  2. YASMIN [Suspect]
     Dosage: UNK
     Route: 048
     Dates: start: 20060401, end: 20080301

REACTIONS (4)
  - ABDOMINAL PAIN [None]
  - GALLBLADDER DISORDER [None]
  - INJURY [None]
  - EMOTIONAL DISTRESS [None]
